FAERS Safety Report 21363741 (Version 7)
Quarter: 2025Q3

REPORT INFORMATION
  Report Type: Report from Study
  Country: EG (occurrence: EG)
  Receive Date: 20220922
  Receipt Date: 20250723
  Transmission Date: 20251021
  Serious: Yes (Other)
  Sender: NOVARTIS
  Company Number: EG-NOVARTISPH-NVSC2022EG201377

PATIENT
  Age: 72 Year
  Sex: Female
  Weight: 84 kg

DRUGS (13)
  1. KISQALI [Suspect]
     Active Substance: RIBOCICLIB SUCCINATE
     Indication: Breast cancer metastatic
     Dosage: 600 MG, QD (3 TABLETS ONCE DAILY FOR 3 WEEKS AND ONE WEEK FREE FOR 3 MONTHS)
     Route: 048
     Dates: start: 20220830
  2. KISQALI [Suspect]
     Active Substance: RIBOCICLIB SUCCINATE
     Dosage: 200 MG, TID 21 DAYS, 1 WEEK OFF FOR 3 MONTHS
     Route: 048
     Dates: start: 2022
  3. KISQALI [Suspect]
     Active Substance: RIBOCICLIB SUCCINATE
     Dosage: 3 DOSAGE FORM, QD (3 TABS ONCE DAILY FOR 21 DAYS AND ONE WEEK OFF)
     Route: 048
  4. KISQALI [Suspect]
     Active Substance: RIBOCICLIB SUCCINATE
     Route: 048
     Dates: end: 20250501
  5. XGEVA [Suspect]
     Active Substance: DENOSUMAB
     Indication: Breast cancer metastatic
     Dosage: 1 DOSAGE FORM, QMO
     Route: 065
     Dates: start: 2022
  6. Amadol [Concomitant]
     Indication: Analgesic therapy
     Dosage: 1 DOSAGE FORM, Q12H
     Route: 048
     Dates: start: 2021
  7. NEURONTIN [Concomitant]
     Active Substance: GABAPENTIN
     Indication: Product used for unknown indication
     Dosage: 1 DOSAGE FORM, QD
     Route: 048
     Dates: start: 202103
  8. BENFOTIAMINE\CYANOCOBALAMIN\PYRIDOXINE HYDROCHLORIDE [Concomitant]
     Active Substance: BENFOTIAMINE\CYANOCOBALAMIN\PYRIDOXINE HYDROCHLORIDE
     Indication: Product used for unknown indication
     Dosage: 1 DOSAGE FORM, QD
     Route: 048
     Dates: start: 202201
  9. Feroglobin [Concomitant]
     Indication: Supplementation therapy
     Dosage: 1 DOSAGE FORM, QD
     Route: 048
     Dates: start: 202201
  10. CONTROLOC [Concomitant]
     Active Substance: PANTOPRAZOLE SODIUM
     Indication: Prophylaxis
     Dosage: 1 DOSAGE FORM, QD
     Route: 048
  11. LEVOTHYROXINE [Concomitant]
     Active Substance: LEVOTHYROXINE
     Indication: Thyroid therapy
     Dosage: 1 DOSAGE FORM, QD
     Route: 048
  12. OLMESARTAN MEDOXOMIL [Concomitant]
     Active Substance: OLMESARTAN MEDOXOMIL
     Indication: Hypertension
     Dosage: 1 DOSAGE FORM, QD (25 YEARS AGO)
     Route: 048
  13. FASLODEX [Concomitant]
     Active Substance: FULVESTRANT
     Indication: Breast cancer metastatic
     Dosage: 1 DOSAGE FORM, QMO
     Route: 065
     Dates: start: 2022

REACTIONS (11)
  - Hypoaesthesia [Not Recovered/Not Resolved]
  - Sleep disorder [Not Recovered/Not Resolved]
  - Peripheral coldness [Not Recovered/Not Resolved]
  - Arthralgia [Not Recovered/Not Resolved]
  - Oedema peripheral [Not Recovered/Not Resolved]
  - Decreased appetite [Not Recovered/Not Resolved]
  - Metastases to liver [Unknown]
  - Pruritus [Not Recovered/Not Resolved]
  - Peripheral swelling [Unknown]
  - Haemoglobin decreased [Not Recovered/Not Resolved]
  - Off label use [Unknown]

NARRATIVE: CASE EVENT DATE: 20220904
